FAERS Safety Report 5521812-7 (Version None)
Quarter: 2007Q4

REPORT INFORMATION
  Report Type: 
  Country: None (occurrence: None)
  Receive Date: 20071120
  Receipt Date: 20070619
  Transmission Date: 20080405
  Serious: No
  Sender: FDA-Public Use
  Company Number: A0653701A

PATIENT
  Age: 70 Year
  Sex: Male

DRUGS (1)
  1. LANOXIN [Suspect]
     Route: 048
     Dates: end: 20070501

REACTIONS (1)
  - XANTHOPSIA [None]
